FAERS Safety Report 16995201 (Version 1)
Quarter: 2019Q4

REPORT INFORMATION
  Report Type: Spontaneous
  Country: US (occurrence: US)
  Receive Date: 20190923
  Receipt Date: 20190923
  Transmission Date: 20200122
  Serious: Yes (Other)
  Sender: FDA-Public Use
  Company Number: None

PATIENT
  Age: 65 Year
  Sex: Female
  Weight: 62.14 kg

DRUGS (2)
  1. LEVOFLOXACIN. [Suspect]
     Active Substance: LEVOFLOXACIN
     Indication: DECUBITUS ULCER
     Dosage: ?          QUANTITY:10 PILLS;?
     Route: 048
  2. LEVOFLOXACIN. [Suspect]
     Active Substance: LEVOFLOXACIN
     Indication: INFECTED SKIN ULCER
     Dosage: ?          QUANTITY:10 PILLS;?
     Route: 048

REACTIONS (4)
  - Chronic obstructive pulmonary disease [None]
  - Condition aggravated [None]
  - Peroneal nerve palsy [None]
  - Back pain [None]
